FAERS Safety Report 10243131 (Version 1)
Quarter: 2014Q2

REPORT INFORMATION
  Report Type: Report from Study
  Country: IN (occurrence: None)
  Receive Date: 20140613
  Receipt Date: 20140613
  Transmission Date: 20141212
  Serious: Yes (Death)
  Sender: FDA-Public Use
  Company Number: ISIS-486

PATIENT
  Sex: 0

DRUGS (1)
  1. PIOGLITAZONE (PIOGLITAZONE HYDROCHLORIDE)(TABLETS) [Suspect]
     Indication: TYPE 2 DIABETES MELLITUS
     Dosage: 1 IN 1 D

REACTIONS (1)
  - Acute myocardial infarction [None]
